FAERS Safety Report 7424496-6 (Version None)
Quarter: 2011Q2

REPORT INFORMATION
  Report Type: 
  Country: None (occurrence: None)
  Receive Date: 20110419
  Receipt Date: 20110412
  Transmission Date: 20111010
  Serious: Yes (Hospitalization)
  Sender: FDA-Public Use
  Company Number: US-SANOFI-AVENTIS-2011SA017146

PATIENT
  Age: 59 Year
  Sex: Female
  Weight: 77.11 kg

DRUGS (42)
  1. FOLIC ACID [Concomitant]
     Dosage: BREAKFAST
  2. ALL OTHER THERAPEUTIC PRODUCTS [Concomitant]
  3. CALCIUM/VITAMIN D [Concomitant]
     Indication: OSTEOPOROSIS
     Dosage: BREAKFAST, LUNCH AND DINNER
  4. FENTANYL [Concomitant]
     Dosage: ONE PATCH EVERY 3 DAYS
  5. ZINC [Concomitant]
  6. PREDNISONE TAB [Concomitant]
     Indication: POLYGLANDULAR AUTOIMMUNE SYNDROME TYPE I
     Dosage: 15 MG BREAKFAST, 5 MG DINNER
  7. ALL OTHER THERAPEUTIC PRODUCTS [Concomitant]
     Dosage: BREAKFAST AND DINNER
  8. HUMALOG [Concomitant]
     Dosage: 15 UNITS BEFORE BREAKFAST, 15 UNITS BEFORE LUNCH AND DINNER SLIDING SCALE
  9. ASTELIN [Concomitant]
     Dosage: 1 SPRAY PER NOSTIL TWICE DAILY
  10. TORSEMIDE [Concomitant]
     Dosage: 20 MG BREAKFAST AND 10 MIG DINNER
  11. NYSTATIN [Concomitant]
     Dosage: SWISH AND SWALLOW 5 ML DAILY OF 1000000U
  12. GENERAL NUTRIENTS [Concomitant]
     Indication: URINARY TRACT INFECTION
     Dosage: 1 AT BREAKFAST AND 1 AT DINNER
  13. GABAPENTIN [Concomitant]
  14. ALL OTHER THERAPEUTIC PRODUCTS [Concomitant]
     Dosage: ON ARMS, LEGS AND FEET
  15. ASPIRIN [Concomitant]
     Indication: POLYGLANDULAR AUTOIMMUNE SYNDROME TYPE I
     Dosage: BREAKFAST AND DINNER
  16. ASPIRIN [Concomitant]
     Dosage: BREAKFAST AND DINNER
  17. IRON [Concomitant]
     Dates: start: 20060802
  18. LANTUS [Suspect]
     Dosage: DOSE:40 UNIT(S)
     Route: 058
  19. STOOL SOFTENER [Concomitant]
     Dosage: 2 DAILY (BREAKFAST AND DINNER)
  20. MINERALS NOS/VITAMIN B NOS [Concomitant]
     Dosage: 1 WITH BREAKFAST
  21. ANTIBIOTICS [Concomitant]
  22. UROCIT-K [Concomitant]
     Dosage: 4 TABLETS AT BREAKFAST AND 4 TABLETS AT DINNER
  23. DEPAKOTE [Concomitant]
     Dosage: WITH BREAKFAST
  24. IMURAN [Concomitant]
     Indication: POLYGLANDULAR AUTOIMMUNE SYNDROME TYPE I
     Dosage: BREAKFAST AND DINNER
  25. ETANERCEPT [Concomitant]
     Dosage: ONE SHOT PER WEEK ON SATURDAY
  26. SYNTHROID [Concomitant]
     Indication: HYPOTHYROIDISM
     Dosage: AT 3PM
  27. SINGULAIR [Concomitant]
     Indication: INTERSTITIAL LUNG DISEASE
     Dosage: WITH BREAKFAST
  28. MAGNESIUM [Concomitant]
     Dosage: 1 AT BREAKFAST
  29. MIRALAX [Concomitant]
     Indication: CONSTIPATION
  30. ATENOLOL [Concomitant]
     Indication: VENTRICULAR TACHYCARDIA
     Dosage: BREAKFAST
  31. UROCIT-K [Concomitant]
     Dosage: 4 TABLETS AT BREAKFAST AND 4 TABLETS AT DINNER
  32. PROVIGIL [Concomitant]
     Indication: NARCOLEPSY
     Dosage: 2 BEFORE BREAKFAST
  33. HYDROCHLOROTHIAZIDE [Concomitant]
     Dosage: WITH BREAKFAST
  34. FLUCONAZOLE [Concomitant]
  35. SELENIUM [Concomitant]
     Dosage: 1 AT BREAKFAST
  36. HERBAL EXTRACTS [Concomitant]
     Indication: CONSTIPATION
  37. GUAIFENESIN [Concomitant]
     Dosage: BREAKFAST AND DINNER
  38. L-LYSINE [Concomitant]
     Dosage: 2 DAILY BREAKFAST AND DINNER
  39. ZETIA [Concomitant]
  40. CELEXA [Concomitant]
     Indication: DEPRESSION
     Dosage: WITH BREAKFAST
  41. VITAMIN B [Concomitant]
     Dosage: 2 AT BREAKFAST
  42. OXYCODONE HCL AND ACETAMINOPHEN [Concomitant]
     Dosage: 5-325 MG, 3 DAILY AS NEEDED

REACTIONS (2)
  - BLOOD GLUCOSE INCREASED [None]
  - LOCALISED INFECTION [None]
